FAERS Safety Report 24985051 (Version 1)
Quarter: 2025Q1

REPORT INFORMATION
  Report Type: Spontaneous
  Country: US (occurrence: US)
  Receive Date: 20250219
  Receipt Date: 20250219
  Transmission Date: 20250409
  Serious: No
  Sender: ABBVIE
  Company Number: US-ABBVIE-6135210

PATIENT

DRUGS (1)
  1. TRILIPIX [Suspect]
     Active Substance: FENOFIBRIC ACID
     Indication: Product used for unknown indication
     Route: 048

REACTIONS (1)
  - Unevaluable event [Unknown]
